FAERS Safety Report 25818962 (Version 1)
Quarter: 2025Q3

REPORT INFORMATION
  Report Type: Spontaneous
  Country: JP (occurrence: JP)
  Receive Date: 20250918
  Receipt Date: 20250918
  Transmission Date: 20251021
  Serious: Yes (Other)
  Sender: The J.Molner Company
  Company Number: JP-THE J. MOLNER COMPANY-202509000051

PATIENT

DRUGS (1)
  1. CLOBETASOL PROPIONATE [Suspect]
     Active Substance: CLOBETASOL PROPIONATE
     Indication: Psoriasis
     Route: 061

REACTIONS (2)
  - Cushing^s syndrome [Unknown]
  - Adrenal insufficiency [Unknown]
